FAERS Safety Report 22385445 (Version 8)
Quarter: 2024Q1

REPORT INFORMATION
  Report Type: Spontaneous
  Country: US (occurrence: US)
  Receive Date: 20230530
  Receipt Date: 20240305
  Transmission Date: 20240410
  Serious: No
  Sender: FDA-Public Use
  Company Number: US-PFIZER INC-PV202300094757

PATIENT
  Age: 54 Year
  Sex: Male

DRUGS (7)
  1. INLYTA [Suspect]
     Active Substance: AXITINIB
     Dosage: UNK
     Dates: end: 20230525
  2. INLYTA [Suspect]
     Active Substance: AXITINIB
     Dosage: 5 MG, DAILY
  3. INLYTA [Suspect]
     Active Substance: AXITINIB
     Dosage: 3 MG, DAILY (TAKES 1 MG TABLETS, ONE IN THE MORNING AND TWO IN THE EVENING)
     Dates: end: 2023
  4. INLYTA [Suspect]
     Active Substance: AXITINIB
     Dosage: UNK
  5. INLYTA [Suspect]
     Active Substance: AXITINIB
     Dosage: 4 MG, DAILY
     Dates: start: 2023
  6. INLYTA [Suspect]
     Active Substance: AXITINIB
     Dosage: 4MG TOTAL ONCE PER DAY
  7. INLYTA [Suspect]
     Active Substance: AXITINIB
     Dosage: TWO TABLETS BID INSTEAD OF THREE TABLETS BID

REACTIONS (16)
  - Abdominal pain lower [Unknown]
  - Headache [Unknown]
  - Blister [Unknown]
  - Dry skin [Unknown]
  - Blood pressure increased [Unknown]
  - Dizziness [Unknown]
  - Nausea [Unknown]
  - Abdominal pain [Unknown]
  - Oral mucosal exfoliation [Unknown]
  - Skin exfoliation [Unknown]
  - Pruritus [Unknown]
  - Oral pain [Unknown]
  - Intentional product misuse [Unknown]
  - Off label use [Unknown]
  - Hyperaesthesia [Unknown]
  - Oral discomfort [Unknown]

NARRATIVE: CASE EVENT DATE: 20230101
